FAERS Safety Report 25019823 (Version 1)
Quarter: 2025Q1

REPORT INFORMATION
  Report Type: Spontaneous
  Country: TH (occurrence: TH)
  Receive Date: 20250227
  Receipt Date: 20250227
  Transmission Date: 20250408
  Serious: Yes (Death)
  Sender: PFIZER
  Company Number: TH-PFIZER INC-PV202500024315

PATIENT
  Age: 68 Year
  Sex: Female

DRUGS (1)
  1. IBRANCE [Suspect]
     Active Substance: PALBOCICLIB
     Indication: Breast cancer
     Route: 048
     Dates: start: 20240504

REACTIONS (1)
  - Death [Fatal]

NARRATIVE: CASE EVENT DATE: 20240601
